FAERS Safety Report 11693266 (Version 1)
Quarter: 2015Q4

REPORT INFORMATION
  Report Type: Spontaneous
  Country: US (occurrence: None)
  Receive Date: 20151102
  Receipt Date: 20151102
  Transmission Date: 20160304
  Serious: Yes (Disabling, Other)
  Sender: FDA-Public Use
  Company Number: None

PATIENT
  Age: 40 Year
  Sex: Female
  Weight: 61.24 kg

DRUGS (5)
  1. GOOD FOOD [Concomitant]
  2. MIRENA [Suspect]
     Active Substance: LEVONORGESTREL
     Dates: start: 20150127, end: 20150822
  3. MAGNESIUM [Concomitant]
     Active Substance: MAGNESIUM
  4. PRO BIOTIC BLEND [Concomitant]
     Active Substance: BIFIDOBACTERIUM SPP.\BIFIDOBACTERIUM LONGUM\LACTOBACILLUS ACIDOPHILUS
  5. MULTI VITAMIN [Concomitant]
     Active Substance: VITAMINS

REACTIONS (25)
  - Fatigue [None]
  - Tinnitus [None]
  - Anxiety [None]
  - Pain [None]
  - Paraesthesia [None]
  - Musculoskeletal stiffness [None]
  - Pain in extremity [None]
  - Pain in jaw [None]
  - Wound infection [None]
  - Rash [None]
  - Bruxism [None]
  - Insomnia [None]
  - Diarrhoea [None]
  - Impaired healing [None]
  - Temperature regulation disorder [None]
  - Swelling [None]
  - Hypoaesthesia [None]
  - Headache [None]
  - Restless legs syndrome [None]
  - Arthralgia [None]
  - Panic attack [None]
  - Affective disorder [None]
  - Night sweats [None]
  - Erythema [None]
  - Contusion [None]

NARRATIVE: CASE EVENT DATE: 20150127
